FAERS Safety Report 7812479-3 (Version None)
Quarter: 2011Q4

REPORT INFORMATION
  Report Type: 
  Country: None (occurrence: None)
  Receive Date: 20111011
  Receipt Date: 20110708
  Transmission Date: 20120403
  Serious: Yes (Death, Other)
  Sender: FDA-Public Use
  Company Number: 2011SP031792

PATIENT
  Age: 60 Year
  Sex: Male
  Weight: 48 kg

DRUGS (26)
  1. PHENOBARBITAL TAB [Concomitant]
  2. TEMODAL [Suspect]
     Indication: GLIOBLASTOMA MULTIFORME
     Dosage: 150 MG/M2;QD;IV  200 MG/M2;QD;IV  100 MG/M2;QD;IV
     Route: 042
     Dates: start: 20100705, end: 20100709
  3. TEMODAL [Suspect]
     Indication: GLIOBLASTOMA MULTIFORME
     Dosage: 150 MG/M2;QD;IV  200 MG/M2;QD;IV  100 MG/M2;QD;IV
     Route: 042
     Dates: start: 20070120, end: 20091003
  4. TEMODAL [Suspect]
     Indication: GLIOBLASTOMA MULTIFORME
     Dosage: 150 MG/M2;QD;IV  200 MG/M2;QD;IV  100 MG/M2;QD;IV
     Route: 042
     Dates: start: 20100928, end: 20101105
  5. TEMODAL [Suspect]
     Indication: GLIOBLASTOMA MULTIFORME
     Dosage: 150 MG/M2;QD;IV  200 MG/M2;QD;IV  100 MG/M2;QD;IV
     Route: 042
     Dates: start: 20100607, end: 20110611
  6. TPN [Suspect]
     Dosage: ;INDRP
     Dates: start: 20100424, end: 20101122
  7. COTRIM [Concomitant]
  8. 10 % SODIUM CHLORIDE [Concomitant]
  9. TRANEXAMIC ACID [Concomitant]
  10. PHENYTOIN SODIUM CAP [Concomitant]
  11. PIPERACILLIN SODIUM [Concomitant]
  12. ELEMENMIC  /01461301/ [Concomitant]
  13. BUFFERIN [Concomitant]
  14. SEROTONE [Concomitant]
  15. UNASYN (SULBACTAM SODIUM) [Concomitant]
  16. CEFOPERAZONE SODIUM [Concomitant]
  17. DEPAKENE [Concomitant]
  18. PLETAAL OD (CILOSTAZOL) [Concomitant]
  19. PLAVIX [Concomitant]
  20. LANSOPRAZOLE [Concomitant]
  21. BIOFERMIN (LACTOMIN/AMYLOLYTIC BACILLUS) [Concomitant]
  22. NEUTROGIN (LENOGRASTIM (GENETICAL RECOMBINATION) [Concomitant]
  23. SODIUM CHLORIDE INJ [Concomitant]
  24. ADONA (CARBAZOCHROME SODIUM SULFONATE HYDRATE) [Concomitant]
  25. UNASYN (SULBACTAM SODIUM) [Concomitant]
  26. ZOSYN (TAZOBACTAM) [Concomitant]

REACTIONS (8)
  - ARTERIOSCLEROSIS [None]
  - HYPONATRAEMIA [None]
  - ELECTROLYTE IMBALANCE [None]
  - THROMBOCYTOPENIA [None]
  - STRESS CARDIOMYOPATHY [None]
  - CEREBRAL INFARCTION [None]
  - ERYTHROPENIA [None]
  - LEUKOPENIA [None]
